FAERS Safety Report 10172940 (Version 1)
Quarter: 2014Q2

REPORT INFORMATION
  Report Type: Spontaneous
  Country: FR (occurrence: FR)
  Receive Date: 20140515
  Receipt Date: 20140515
  Transmission Date: 20141212
  Serious: Yes (Hospitalization)
  Sender: FDA-Public Use
  Company Number: FR-JNJFOC-20140506169

PATIENT
  Age: 87 Year
  Sex: Female
  Weight: 60 kg

DRUGS (9)
  1. IXPRIM [Suspect]
     Indication: PAIN
     Route: 048
     Dates: end: 20140315
  2. COTAREG [Suspect]
     Indication: HYPERTENSION
     Dosage: 160/25 MG
     Route: 048
     Dates: end: 20140315
  3. EUPANTOL [Suspect]
     Indication: PRODUCT USED FOR UNKNOWN INDICATION
     Route: 048
     Dates: end: 20140315
  4. CALCIDOSE VITAMINE D [Concomitant]
     Indication: PRODUCT USED FOR UNKNOWN INDICATION
     Route: 048
     Dates: start: 201403
  5. DOLIPRANE [Concomitant]
     Indication: PAIN
     Route: 048
     Dates: start: 201403
  6. LYRICA [Concomitant]
     Indication: PAIN
     Route: 048
     Dates: start: 201403
  7. LYRICA [Concomitant]
     Indication: PAIN
     Route: 048
     Dates: end: 201403
  8. AMLOR [Concomitant]
     Indication: HYPERTENSION
     Route: 048
  9. CACIT VITAMINE D3 [Concomitant]
     Indication: OSTEOPOROSIS
     Route: 048

REACTIONS (2)
  - Hyponatraemia [Recovered/Resolved]
  - Hypokalaemia [Recovered/Resolved]
